FAERS Safety Report 23273818 (Version 2)
Quarter: 2023Q4

REPORT INFORMATION
  Report Type: Spontaneous
  Country: RS (occurrence: RS)
  Receive Date: 20231207
  Receipt Date: 20231213
  Transmission Date: 20240110
  Serious: Yes (Other)
  Sender: FDA-Public Use
  Company Number: RS-MLMSERVICE-20231123-4683291-1

PATIENT
  Sex: Male

DRUGS (6)
  1. CYCLOPHOSPHAMIDE [Suspect]
     Active Substance: CYCLOPHOSPHAMIDE
     Indication: Diffuse large B-cell lymphoma
     Dosage: DA-EPOCH-R CHEMOTHERAPY, 3 CYCLICAL
     Route: 065
  2. RITUXIMAB [Suspect]
     Active Substance: RITUXIMAB
     Indication: Diffuse large B-cell lymphoma
     Dosage: DA-EPOCH-R CHEMOTHERAPY, 3 CYCLICAL
     Route: 065
  3. DOXORUBICIN [Suspect]
     Active Substance: DOXORUBICIN
     Indication: Diffuse large B-cell lymphoma
     Dosage: DA-EPOCH-R CHEMOTHERAPY, 3 CYCLICAL
     Route: 065
  4. PREDNISONE [Suspect]
     Active Substance: PREDNISONE
     Indication: Diffuse large B-cell lymphoma
     Dosage: DA-EPOCH-R CHEMOTHERAPY, 3 CYCLICAL
     Route: 065
  5. VINCRISTINE [Suspect]
     Active Substance: VINCRISTINE
     Indication: Diffuse large B-cell lymphoma
     Dosage: DA-EPOCH-R CHEMOTHERAPY, 3 CYCLICAL
     Route: 065
  6. ETOPOSIDE [Suspect]
     Active Substance: ETOPOSIDE
     Indication: Diffuse large B-cell lymphoma
     Dosage: DA-EPOCH-R CHEMOTHERAPY, 3CYCLICAL
     Route: 065

REACTIONS (3)
  - Ischaemic stroke [Recovered/Resolved]
  - Syncope [Unknown]
  - Headache [Unknown]
